FAERS Safety Report 13802705 (Version 1)
Quarter: 2017Q3

REPORT INFORMATION
  Report Type: Spontaneous
  Country: FR (occurrence: FR)
  Receive Date: 20170727
  Receipt Date: 20170727
  Transmission Date: 20171127
  Serious: Yes (Death, Other)
  Sender: FDA-Public Use
  Company Number: FR-ASTRAZENECA-2017SE75559

PATIENT
  Age: 60 Year
  Sex: Female

DRUGS (2)
  1. FULVESTRANT. [Suspect]
     Active Substance: FULVESTRANT
     Indication: BREAST CANCER METASTATIC
     Dosage: AT UNKNOWN DOSE, CYCLIC ON DAY 1, DAY 15, AND DAY 28
     Route: 030
  2. PALBOCICLIB [Suspect]
     Active Substance: PALBOCICLIB
     Indication: BREAST CANCER METASTATIC
     Dosage: UNKNOWN DOSE AND FREQUENCY FOR THREE WEEKS
     Route: 048

REACTIONS (4)
  - Death [Fatal]
  - Metastases to liver [Unknown]
  - Malignant neoplasm progression [Unknown]
  - Off label use [Unknown]
